FAERS Safety Report 20050234 (Version 6)
Quarter: 2022Q2

REPORT INFORMATION
  Report Type: Spontaneous
  Country: US (occurrence: US)
  Receive Date: 20211109
  Receipt Date: 20220415
  Transmission Date: 20220721
  Serious: Yes (Other)
  Sender: FDA-Public Use
  Company Number: US-DSJP-DSU-2021-136933AA

PATIENT
  Age: 47 Year
  Sex: Female

DRUGS (6)
  1. TURALIO [Suspect]
     Active Substance: PEXIDARTINIB HYDROCHLORIDE
     Indication: Neoplasm
     Dosage: 800 MG, BID
     Route: 048
     Dates: start: 202110, end: 20211105
  2. TURALIO [Suspect]
     Active Substance: PEXIDARTINIB HYDROCHLORIDE
     Dosage: 400 MG, 2 CAPSULES BID
     Route: 048
     Dates: start: 20211019, end: 20211105
  3. TURALIO [Suspect]
     Active Substance: PEXIDARTINIB HYDROCHLORIDE
     Dosage: 200 MG, QD
     Route: 048
     Dates: start: 20211217
  4. TURALIO [Suspect]
     Active Substance: PEXIDARTINIB HYDROCHLORIDE
     Dosage: 200 MG, QD
     Route: 048
     Dates: start: 20211019, end: 20211105
  5. TURALIO [Suspect]
     Active Substance: PEXIDARTINIB HYDROCHLORIDE
     Dosage: 200MG QAM, 400MG QPM
     Route: 048
     Dates: start: 20211019
  6. TURALIO [Suspect]
     Active Substance: PEXIDARTINIB HYDROCHLORIDE
     Dosage: 600 MG, QD
     Route: 048
     Dates: start: 20211019, end: 20211105

REACTIONS (8)
  - Abdominal pain upper [Unknown]
  - Respiration abnormal [Unknown]
  - Dyspnoea [Recovered/Resolved]
  - Pulmonary mass [Recovering/Resolving]
  - Abdominal pain [Recovered/Resolved]
  - Incorrect dose administered [Unknown]
  - Hair colour changes [Recovered/Resolved]
  - Hypertension [Unknown]

NARRATIVE: CASE EVENT DATE: 20211104
